FAERS Safety Report 19064812 (Version 1)
Quarter: 2021Q1

REPORT INFORMATION
  Report Type: Report from Study
  Country: ZA (occurrence: ZA)
  Receive Date: 20210326
  Receipt Date: 20210326
  Transmission Date: 20210420
  Serious: Yes (Death)
  Sender: FDA-Public Use
  Company Number: ZA-ASTRAZENECA-2021A203142

PATIENT
  Sex: Male

DRUGS (2)
  1. SYMBICORD [Suspect]
     Active Substance: BUDESONIDE\FORMOTEROL
     Dosage: 320 UG/INHAL UNKNOWN
     Route: 055
  2. SYMBICORD [Suspect]
     Active Substance: BUDESONIDE\FORMOTEROL
     Dosage: 160 UG/INHAL UNKNOWN
     Route: 055

REACTIONS (1)
  - Death [Fatal]
